FAERS Safety Report 21696689 (Version 2)
Quarter: 2022Q4

REPORT INFORMATION
  Report Type: Spontaneous
  Country: US (occurrence: US)
  Receive Date: 20221207
  Receipt Date: 20221213
  Transmission Date: 20230113
  Serious: Yes (Other)
  Sender: FDA-Public Use
  Company Number: US-SUN PHARMACEUTICAL INDUSTRIES LTD-2022R1-367108

PATIENT
  Age: 13 Year
  Sex: Female

DRUGS (6)
  1. DOXORUBICIN [Suspect]
     Active Substance: DOXORUBICIN
     Indication: Chemotherapy
     Dosage: UNK
     Route: 065
  2. VINCRISTINE [Suspect]
     Active Substance: VINCRISTINE
     Indication: Chemotherapy
     Dosage: UNK
     Route: 065
  3. PREDNISONE [Suspect]
     Active Substance: PREDNISONE
     Indication: Chemotherapy
  4. CYCLOPHOSPHAMIDE [Suspect]
     Active Substance: CYCLOPHOSPHAMIDE
     Indication: Chemotherapy
     Dosage: 330 MILLIGRAM/SQ. METER
     Route: 065
  5. RITUXIMAB [Suspect]
     Active Substance: RITUXIMAB
     Indication: Chemotherapy
     Dosage: 375 MILLIGRAM/SQ. METER, WEEKLY FOR FOUR DOSE
     Route: 065
  6. SILTUXIMAB [Concomitant]
     Active Substance: SILTUXIMAB
     Indication: Chemotherapy
     Dosage: UNK
     Route: 065

REACTIONS (1)
  - Therapy partial responder [Unknown]
